FAERS Safety Report 12099411 (Version 1)
Quarter: 2016Q1

REPORT INFORMATION
  Report Type: Spontaneous
  Country: US (occurrence: US)
  Receive Date: 20160222
  Receipt Date: 20160222
  Transmission Date: 20160526
  Serious: No
  Sender: FDA-Public Use
  Company Number: US-TEVA-584268USA

PATIENT
  Sex: Male
  Weight: 76.27 kg

DRUGS (1)
  1. AMOXICILLIN. [Suspect]
     Active Substance: AMOXICILLIN
     Indication: TOOTH INFECTION
     Route: 048
     Dates: start: 2015, end: 2015

REACTIONS (2)
  - Feeling abnormal [Recovering/Resolving]
  - Gastric disorder [Recovering/Resolving]

NARRATIVE: CASE EVENT DATE: 2015
